FAERS Safety Report 9937454 (Version 1)
Quarter: 2014Q1

REPORT INFORMATION
  Report Type: Spontaneous
  Country: US (occurrence: US)
  Receive Date: 20140303
  Receipt Date: 20140303
  Transmission Date: 20141002
  Serious: Yes (Hospitalization)
  Sender: FDA-Public Use
  Company Number: US-BIOGENIDEC-2014BI018336

PATIENT
  Age: 12 Year
  Sex: Female

DRUGS (2)
  1. TYSABRI [Suspect]
     Indication: MULTIPLE SCLEROSIS
     Route: 042
     Dates: start: 20130927, end: 20140123
  2. TYSABRI [Suspect]
     Indication: MULTIPLE SCLEROSIS

REACTIONS (2)
  - Multiple sclerosis relapse [Recovered/Resolved]
  - Off label use [Unknown]
